FAERS Safety Report 25755681 (Version 2)
Quarter: 2025Q4

REPORT INFORMATION
  Report Type: Spontaneous
  Country: JP (occurrence: JP)
  Receive Date: 20250903
  Receipt Date: 20251115
  Transmission Date: 20260117
  Serious: Yes (Death, Hospitalization, Other)
  Sender: UNITED THERAPEUTICS
  Company Number: JP-UNITED THERAPEUTICS-UNT-2025-030417

PATIENT
  Age: 64 Year
  Sex: Female

DRUGS (3)
  1. TREPROSTINIL [Suspect]
     Active Substance: TREPROSTINIL
     Indication: Product used for unknown indication
     Dosage: UNK
  2. TREPROSTINIL [Suspect]
     Active Substance: TREPROSTINIL
     Dosage: 18 ?G, QID
  3. TREPROSTINIL [Suspect]
     Active Substance: TREPROSTINIL
     Dosage: 24 ?G, QID
     Dates: end: 202508

REACTIONS (5)
  - General physical health deterioration [Fatal]
  - Low cardiac output syndrome [Unknown]
  - Blood lactic acid [Unknown]
  - Malaise [Unknown]
  - Blood pressure decreased [Unknown]

NARRATIVE: CASE EVENT DATE: 20250801
